FAERS Safety Report 21677527 (Version 6)
Quarter: 2023Q2

REPORT INFORMATION
  Report Type: Report from Study
  Country: US (occurrence: US)
  Receive Date: 20221203
  Receipt Date: 20230630
  Transmission Date: 20230722
  Serious: Yes (Other)
  Sender: FDA-Public Use
  Company Number: US-002147023-NVSC2022US280092

PATIENT
  Sex: Female

DRUGS (3)
  1. PIQRAY [Suspect]
     Active Substance: ALPELISIB
     Indication: Product used for unknown indication
     Dosage: UNK
     Route: 048
  2. PIQRAY [Suspect]
     Active Substance: ALPELISIB
     Dosage: 1 DOSAGE FORM, QD (1 PILL PER DAY)
     Route: 048
  3. PIQRAY [Suspect]
     Active Substance: ALPELISIB
     Dosage: 300 MG
     Route: 048

REACTIONS (16)
  - Blood glucose increased [Unknown]
  - Haematocrit decreased [Unknown]
  - Sleep disorder [Unknown]
  - Feeding disorder [Unknown]
  - Hot flush [Unknown]
  - Back pain [Unknown]
  - Arthralgia [Unknown]
  - Weight decreased [Unknown]
  - Fracture [Unknown]
  - Asthenia [Unknown]
  - Diarrhoea [Unknown]
  - Blood creatinine increased [Unknown]
  - Haemoglobin decreased [Unknown]
  - Red blood cell count decreased [Unknown]
  - Decreased appetite [Unknown]
  - Rash [Unknown]
